FAERS Safety Report 7468974-2 (Version None)
Quarter: 2011Q2

REPORT INFORMATION
  Report Type: 
  Country: None (occurrence: None)
  Receive Date: 20110429
  Receipt Date: 20110425
  Transmission Date: 20111010
  Serious: Yes (Life-Threatening, Hospitalization)
  Sender: FDA-Public Use
  Company Number: 2011SP001926

PATIENT
  Age: 83 Year
  Sex: Female
  Weight: 53 kg

DRUGS (1)
  1. TEMODAL [Suspect]
     Indication: GLIOBLASTOMA
     Dosage: 120 MG; QD; PO
     Route: 048
     Dates: start: 20101213, end: 20110121

REACTIONS (3)
  - SYNCOPE [None]
  - PULMONARY EMBOLISM [None]
  - BLOOD PRESSURE DECREASED [None]
